FAERS Safety Report 18212423 (Version 1)
Quarter: 2020Q3

REPORT INFORMATION
  Report Type: Report from Study
  Country: None (occurrence: BR)
  Receive Date: 20200831
  Receipt Date: 20200831
  Transmission Date: 20201103
  Serious: Yes (Other)
  Sender: FDA-Public Use
  Company Number: BR-ABBVIE-20K-020-3542274-00

PATIENT
  Sex: Female
  Weight: 70 kg

DRUGS (1)
  1. HUMIRA [Suspect]
     Active Substance: ADALIMUMAB
     Indication: AXIAL SPONDYLOARTHRITIS
     Route: 058
     Dates: start: 20200114, end: 202007

REACTIONS (8)
  - Gait disturbance [Unknown]
  - Skin disorder [Not Recovered/Not Resolved]
  - Insomnia [Unknown]
  - Skin irritation [Unknown]
  - Weight decreased [Recovering/Resolving]
  - Skin laceration [Recovering/Resolving]
  - Pain of skin [Not Recovered/Not Resolved]
  - Wound [Recovering/Resolving]

NARRATIVE: CASE EVENT DATE: 2020
